FAERS Safety Report 6469739-0 (Version None)
Quarter: 2009Q4

REPORT INFORMATION
  Report Type: 
  Country: None (occurrence: None)
  Receive Date: 20091203
  Receipt Date: 20071017
  Transmission Date: 20100525
  Serious: Yes (Death, Other)
  Sender: FDA-Public Use
  Company Number: US-ELI_LILLY_AND_COMPANY-US200710002654

PATIENT
  Age: 50 Year
  Sex: Female

DRUGS (2)
  1. XIGRIS [Suspect]
     Indication: SEPSIS
     Dosage: UNK, UNK
     Route: 042
     Dates: start: 20071007, end: 20071011
  2. ZOSYN [Concomitant]
     Indication: ANTIBIOTIC PROPHYLAXIS

REACTIONS (5)
  - ACUTE RESPIRATORY DISTRESS SYNDROME [None]
  - HYPOTENSION [None]
  - PLATELET COUNT DECREASED [None]
  - PULMONARY OEDEMA [None]
  - SEPTIC SHOCK [None]
